FAERS Safety Report 4490239-1 (Version None)
Quarter: 2004Q4

REPORT INFORMATION
  Report Type: 
  Country: None (occurrence: None)
  Receive Date: 20041027
  Receipt Date: 20041014
  Transmission Date: 20050328
  Serious: Yes (Life-Threatening)
  Sender: FDA-Public Use
  Company Number: SGB1-2004-00115

PATIENT
  Age: 69 Year
  Sex: Male

DRUGS (4)
  1. MIDODRINE (MIDODRINE) TABLET [Suspect]
     Indication: ORTHOSTATIC HYPOTENSION
     Dosage: 10MG, 10MG 5MG, ORAL
     Route: 048
     Dates: start: 20030801
  2. FLUDROCORTISONE ACETATE TAB [Suspect]
     Dosage: 200 UG, ORAL
     Route: 048
  3. PREDNISOLONE [Concomitant]
  4. CARBIDOPA W/LEVODOPA (CARBIDOPA, LEVODOPA) [Concomitant]

REACTIONS (6)
  - CEREBRAL INFARCTION [None]
  - CEREBROVASCULAR ACCIDENT [None]
  - DELUSION [None]
  - FLUID INTAKE REDUCED [None]
  - HALLUCINATIONS, MIXED [None]
  - LOSS OF CONSCIOUSNESS [None]
